FAERS Safety Report 4271260-5 (Version None)
Quarter: 2004Q1

REPORT INFORMATION
  Report Type: 
  Country: None (occurrence: None)
  Receive Date: 20040114
  Receipt Date: 20040114
  Transmission Date: 20041129
  Serious: Yes (Hospitalization)
  Sender: FDA-Public Use
  Company Number: None

PATIENT
  Age: 52 Year
  Sex: Female

DRUGS (6)
  1. LOTREL [Suspect]
     Indication: HYPERTENSION
     Dosage: PO QD
     Route: 048
     Dates: start: 20030825, end: 20030909
  2. DIOVAN [Concomitant]
  3. TOPROL-XL [Concomitant]
  4. ADVAIR DISKUS 250/50 [Concomitant]
  5. COLACE [Concomitant]
  6. POTASSIUM [Concomitant]

REACTIONS (1)
  - ANGIONEUROTIC OEDEMA [None]
